FAERS Safety Report 6008554-9 (Version None)
Quarter: 2008Q4

REPORT INFORMATION
  Report Type: 
  Country: None (occurrence: None)
  Receive Date: 20081217
  Receipt Date: 20081209
  Transmission Date: 20090506
  Serious: No
  Sender: FDA-Public Use
  Company Number: US-B.I. PHARMACEUTICALS,INC./RIDGEFIELD-2008-BP-15272BP

PATIENT
  Age: 77 Year
  Sex: Female

DRUGS (8)
  1. SPIRIVA [Suspect]
     Indication: BRONCHITIS CHRONIC
     Route: 055
     Dates: start: 20040101
  2. SPIRIVA [Suspect]
     Indication: OBSTRUCTIVE AIRWAYS DISORDER
  3. ALBUTEROL [Concomitant]
     Indication: DYSPNOEA
  4. COUMADIN [Concomitant]
     Indication: THROMBOSIS
  5. SYNTHROID [Concomitant]
     Indication: THYROID DISORDER
  6. LASIX [Concomitant]
     Indication: OEDEMA PERIPHERAL
  7. FOSAMAX [Concomitant]
  8. ASMANEX TWISTHALER [Concomitant]

REACTIONS (3)
  - DRUG INEFFECTIVE [None]
  - DRY MOUTH [None]
  - RASH PRURITIC [None]
